FAERS Safety Report 16414155 (Version 1)
Quarter: 2019Q2

REPORT INFORMATION
  Report Type: Report from Study
  Country: HU (occurrence: HU)
  Receive Date: 20190611
  Receipt Date: 20190611
  Transmission Date: 20190711
  Serious: Yes (Other)
  Sender: FDA-Public Use
  Company Number: PHHY2019HU131868

PATIENT
  Age: 70 Year
  Sex: Female
  Weight: 55 kg

DRUGS (7)
  1. MEKINIST [Suspect]
     Active Substance: TRAMETINIB DIMETHYL SULFOXIDE
     Dosage: UNK
     Route: 048
     Dates: start: 20190522
  2. CARBAMIDE [Concomitant]
     Active Substance: UREA
     Indication: NAIL DISORDER
     Route: 065
  3. TAFINLAR [Suspect]
     Active Substance: DABRAFENIB MESYLATE
     Dosage: (2X1)
     Route: 048
     Dates: start: 201904, end: 201905
  4. TAFINLAR [Suspect]
     Active Substance: DABRAFENIB MESYLATE
     Dosage: UNK
     Route: 048
     Dates: start: 20190522
  5. MEKINIST [Suspect]
     Active Substance: TRAMETINIB DIMETHYL SULFOXIDE
     Indication: MALIGNANT MELANOMA
     Dosage: 2 MG, QD (IN THE EVENING)
     Route: 048
     Dates: start: 20190207, end: 201905
  6. CERUCAL [Concomitant]
     Active Substance: METOCLOPRAMIDE HYDROCHLORIDE
     Indication: PRODUCT USED FOR UNKNOWN INDICATION
     Route: 065
  7. TAFINLAR [Suspect]
     Active Substance: DABRAFENIB MESYLATE
     Indication: MALIGNANT MELANOMA
     Dosage: 75 MG, (2X2)
     Route: 048
     Dates: start: 20190207, end: 201904

REACTIONS (21)
  - Metastases to central nervous system [Recovering/Resolving]
  - Peripheral swelling [Recovering/Resolving]
  - Nausea [Recovering/Resolving]
  - Blood cholesterol increased [Recovering/Resolving]
  - Blood alkaline phosphatase increased [Not Recovered/Not Resolved]
  - Metastases to skin [Recovering/Resolving]
  - Metastases to bone [Recovering/Resolving]
  - Pectus excavatum [Unknown]
  - Blood triglycerides increased [Recovering/Resolving]
  - C-reactive protein increased [Unknown]
  - Metastases to lung [Recovering/Resolving]
  - Adrenal gland cancer [Recovering/Resolving]
  - Asthenia [Recovering/Resolving]
  - Pyrexia [Recovered/Resolved]
  - Thyroglobulin increased [Recovering/Resolving]
  - Red blood cell sedimentation rate increased [Unknown]
  - Electrocardiogram QT shortened [Unknown]
  - Cholelithiasis [Unknown]
  - Renal cyst [Unknown]
  - Malignant melanoma [Recovering/Resolving]
  - Malignant neoplasm progression [Recovering/Resolving]

NARRATIVE: CASE EVENT DATE: 20190218
